FAERS Safety Report 15152968 (Version 6)
Quarter: 2019Q1

REPORT INFORMATION
  Report Type: Report from Study
  Country: US (occurrence: US)
  Receive Date: 20180717
  Receipt Date: 20190131
  Transmission Date: 20190417
  Serious: Yes (Death, Disabling, Other)
  Sender: FDA-Public Use
  Company Number: US-ROCHE-2093898

PATIENT
  Age: 32 Year
  Sex: Female
  Weight: 48.5 kg

DRUGS (15)
  1. BEVACIZUMAB. [Suspect]
     Active Substance: BEVACIZUMAB
     Indication: CERVIX CANCER METASTATIC
     Dosage: (15 MG/KG IV OVER 90 MINUTES ON DAY 1)?MOST RECENT AND LAST DOSE ON 27/NOV/2017.
     Route: 042
     Dates: start: 20171218, end: 20180129
  2. ONDANSETRON [Concomitant]
     Active Substance: ONDANSETRON
  3. ENOXAPARIN [Concomitant]
     Active Substance: ENOXAPARIN
  4. LOPERAMIDE [Concomitant]
     Active Substance: LOPERAMIDE
  5. ATEZOLIZUMAB. [Suspect]
     Active Substance: ATEZOLIZUMAB
     Indication: CERVIX CARCINOMA
     Dosage: 1200 MG IV OVER 60 MINUTES ON DAY 1?MOST RECENT DOSE ON (CYCLE 2) 27/NOV/2017.
     Route: 042
     Dates: start: 20171127, end: 20180129
  6. ZINC SULFATE [Concomitant]
     Active Substance: ZINC SULFATE\ZINC SULFATE ANHYDROUS
  7. LEVOTHYROXINE. [Concomitant]
     Active Substance: LEVOTHYROXINE
  8. OXYCODONE [Concomitant]
     Active Substance: OXYCODONE
  9. METOCLOPRAMIDE. [Concomitant]
     Active Substance: METOCLOPRAMIDE
  10. PEGFILGRASTIM [Concomitant]
     Active Substance: PEGFILGRASTIM
  11. METHYLPHENIDATE HYDROCHLORIDE. [Concomitant]
     Active Substance: METHYLPHENIDATE HYDROCHLORIDE
  12. PROMETHAZINE [Concomitant]
     Active Substance: PROMETHAZINE\PROMETHAZINE HYDROCHLORIDE
  13. ONDANSETRON [Concomitant]
     Active Substance: ONDANSETRON
  14. DEXAMETHASONE. [Concomitant]
     Active Substance: DEXAMETHASONE
  15. PROPYLTHIOURACIL. [Concomitant]
     Active Substance: PROPYLTHIOURACIL

REACTIONS (13)
  - Embolism [Unknown]
  - Paraesthesia [Unknown]
  - Facial nerve disorder [Unknown]
  - Hyperthyroidism [Unknown]
  - Arachnoiditis [Not Recovered/Not Resolved]
  - Death [Fatal]
  - Myelitis [Unknown]
  - Muscular weakness [Not Recovered/Not Resolved]
  - Deafness neurosensory [Not Recovered/Not Resolved]
  - Anal incontinence [Unknown]
  - Pneumonitis [Recovered/Resolved with Sequelae]
  - Dysphagia [Unknown]
  - Extraocular muscle paresis [Unknown]

NARRATIVE: CASE EVENT DATE: 20171218
